FAERS Safety Report 6999319-X (Version None)
Quarter: 2010Q3

REPORT INFORMATION
  Report Type: 
  Country: None (occurrence: None)
  Receive Date: 20100920
  Receipt Date: 20100517
  Transmission Date: 20110219
  Serious: Yes (Hospitalization)
  Sender: FDA-Public Use
  Company Number: US-ASTRAZENECA-2009SE18400

PATIENT
  Sex: Male

DRUGS (9)
  1. SEROQUEL [Suspect]
     Route: 048
     Dates: start: 20040109, end: 20040622
  2. HYDROCHLOROTHIAZIDE [Concomitant]
     Indication: BLOOD PRESSURE
     Route: 048
     Dates: start: 20031205, end: 20031205
  3. HYDROCHLOROTHIAZIDE [Concomitant]
     Route: 048
     Dates: start: 20040109, end: 20040622
  4. DEPAKOTE [Concomitant]
  5. CELEXA [Concomitant]
  6. ASPIRIN [Concomitant]
     Dates: start: 20041228
  7. PROTONIX [Concomitant]
     Dates: start: 20041228
  8. LISINOPRIL [Concomitant]
     Dates: start: 20041228
  9. REGLAN [Concomitant]
     Dates: start: 20041228

REACTIONS (2)
  - DIABETES MELLITUS [None]
  - DIABETIC KETOACIDOSIS [None]
